FAERS Safety Report 12473007 (Version 1)
Quarter: 2016Q2

REPORT INFORMATION
  Report Type: Spontaneous
  Country: US (occurrence: US)
  Receive Date: 20160616
  Receipt Date: 20160616
  Transmission Date: 20160815
  Serious: No
  Sender: FDA-Public Use
  Company Number: US-BAYER-2016-117113

PATIENT
  Age: 71 Year
  Sex: Male
  Weight: 58.95 kg

DRUGS (1)
  1. MIRALAX [Suspect]
     Active Substance: POLYETHYLENE GLYCOL 3350
     Indication: CONSTIPATION
     Dosage: 1-0.5 DF, QD
     Route: 048
     Dates: start: 20160608

REACTIONS (1)
  - Product use issue [None]
